FAERS Safety Report 9387911 (Version 1)
Quarter: 2013Q3

REPORT INFORMATION
  Report Type: Report from Study
  Country: US (occurrence: US)
  Receive Date: 20130708
  Receipt Date: 20130708
  Transmission Date: 20140515
  Serious: Yes (Hospitalization, Other)
  Sender: FDA-Public Use
  Company Number: PHEH2013US006528

PATIENT
  Age: 61 Year
  Sex: Male

DRUGS (5)
  1. GILENYA [Suspect]
     Indication: MULTIPLE SCLEROSIS
     Dosage: 0.5 MG, QD
     Route: 048
     Dates: start: 20110119
  2. FLUOXETINE [Concomitant]
     Indication: DEPRESSION
     Route: 048
  3. DETROL LA [Concomitant]
     Indication: AUTOMATIC BLADDER
     Route: 048
  4. WELCHOL [Concomitant]
     Indication: HEADACHE
     Dosage: UNK
     Route: 048
  5. PRILOSEC [Concomitant]
     Indication: GASTROOESOPHAGEAL REFLUX DISEASE
     Route: 048

REACTIONS (2)
  - Wound infection staphylococcal [Recovered/Resolved]
  - Crohn^s disease [Unknown]
